FAERS Safety Report 8808437 (Version 2)
Quarter: 2012Q4

REPORT INFORMATION
  Report Type: 
  Country: US (occurrence: US)
  Receive Date: 20120926
  Receipt Date: 20121018
  Transmission Date: 20130627
  Serious: Yes (Hospitalization)
  Sender: FDA-Public Use
  Company Number: US-PFIZER INC-2012236392

PATIENT
  Age: 82 Year
  Sex: Female
  Weight: 86.62 kg

DRUGS (1)
  1. LIPITOR [Suspect]
     Indication: BLOOD CHOLESTEROL INCREASED
     Dosage: 10 mg, daily
     Dates: end: 2011

REACTIONS (3)
  - Fall [Recovering/Resolving]
  - Musculoskeletal disorder [Recovering/Resolving]
  - Drug hypersensitivity [Unknown]
